FAERS Safety Report 15697582 (Version 8)
Quarter: 2019Q2

REPORT INFORMATION
  Report Type: Report from Study
  Country: None (occurrence: BE)
  Receive Date: 20181207
  Receipt Date: 20190522
  Transmission Date: 20190711
  Serious: Yes (Hospitalization, Other)
  Sender: FDA-Public Use
  Company Number: BE-ABBVIE-18S-013-2578760-00

PATIENT
  Age: 86 Year
  Sex: Female

DRUGS (6)
  1. DUODOPA [Suspect]
     Active Substance: CARBIDOPA\LEVODOPA
     Indication: PARKINSON^S DISEASE
     Dosage: MD= 6ML CD= 2.5ML/HR DURING 16HRS  ED= 2ML
     Route: 050
     Dates: start: 20080331, end: 20130826
  2. DUODOPA [Suspect]
     Active Substance: CARBIDOPA\LEVODOPA
     Dosage: MD=5ML CD=1.7ML/HR DURING 16HRS ED=1ML
     Route: 050
     Dates: start: 20190323
  3. DUODOPA [Suspect]
     Active Substance: CARBIDOPA\LEVODOPA
     Dosage: MD= 5ML, CD= 1.7ML/HR DURING 16HRS, ED= 1ML
     Route: 050
     Dates: start: 20170818, end: 20190323
  4. PROLOPA 125 [Concomitant]
     Indication: PARKINSON^S DISEASE
     Dosage: FORM STRENGTH: 100MG/25MG
     Route: 048
  5. PROLOPA 125 [Concomitant]
     Dosage: RESCUE MEDICATION, FORM STRENGTH: 100MG/25MG
     Route: 048
  6. DUODOPA [Suspect]
     Active Substance: CARBIDOPA\LEVODOPA
     Dosage: DOSES CONTINUOUSLY MONITORED AND ADAPTED
     Route: 050
     Dates: start: 20130826, end: 20170818

REACTIONS (9)
  - Device occlusion [Recovered/Resolved]
  - General physical condition decreased [Not Recovered/Not Resolved]
  - Stoma site hypergranulation [Recovering/Resolving]
  - Off label use [Recovered/Resolved]
  - Cerebrovascular accident [Unknown]
  - General physical health deterioration [Unknown]
  - Cognitive disorder [Not Recovered/Not Resolved]
  - Stoma site infection [Unknown]
  - Paralysis [Unknown]

NARRATIVE: CASE EVENT DATE: 201812
